FAERS Safety Report 5339767-7 (Version None)
Quarter: 2007Q2

REPORT INFORMATION
  Report Type: 
  Country: None (occurrence: None)
  Receive Date: 20070525
  Receipt Date: 20070516
  Transmission Date: 20071010
  Serious: Yes (Hospitalization)
  Sender: FDA-Public Use
  Company Number: 233980K07USA

PATIENT
  Age: 43 Year
  Sex: Female

DRUGS (12)
  1. . [Concomitant]
  2. REBIF [Suspect]
     Indication: MULTIPLE SCLEROSIS
     Dosage: SEE IMAGE
     Route: 058
     Dates: start: 20070427, end: 20070101
  3. REBIF [Suspect]
     Indication: MULTIPLE SCLEROSIS
     Dosage: SEE IMAGE
     Route: 058
     Dates: end: 20070101
  4. LISINOPRIL [Concomitant]
  5. ATENOLOL [Concomitant]
  6. DILTIAZEM (DILTIAZEM /00489701/) [Concomitant]
  7. GLYBURIDE [Concomitant]
  8. MULTI-VITAMINS [Concomitant]
  9. NEXIUM [Concomitant]
  10. MIRAPEX [Concomitant]
  11. FOLIC ACID [Concomitant]
  12. B-12 (CYANOCOBALAMIN) [Concomitant]

REACTIONS (7)
  - DEPRESSION [None]
  - FLIGHT OF IDEAS [None]
  - HYPOAESTHESIA [None]
  - MOOD SWINGS [None]
  - OVERDOSE [None]
  - PARAESTHESIA [None]
  - PSYCHOTIC DISORDER [None]
